FAERS Safety Report 12875179 (Version 1)
Quarter: 2016Q4

REPORT INFORMATION
  Report Type: Report from Study
  Country: IN (occurrence: IN)
  Receive Date: 20161024
  Receipt Date: 20161024
  Transmission Date: 20170207
  Serious: Yes (Other)
  Sender: FDA-Public Use
  Company Number: IN-ROCHE-1843480

PATIENT
  Age: 24 Year
  Sex: Male

DRUGS (1)
  1. EXXURA [Suspect]
     Active Substance: PEGINTERFERON ALFA-2A
     Indication: HEPATITIS B
     Route: 058
     Dates: start: 20150129

REACTIONS (4)
  - Viral load increased [Not Recovered/Not Resolved]
  - Infection [Not Recovered/Not Resolved]
  - Dengue fever [Unknown]
  - Platelet count decreased [Unknown]
